FAERS Safety Report 10595020 (Version 1)
Quarter: 2014Q4

REPORT INFORMATION
  Report Type: Spontaneous
  Country: DE (occurrence: None)
  Receive Date: 20141114
  Receipt Date: 20141114
  Transmission Date: 20150529
  Serious: Yes (Other)
  Sender: FDA-Public Use
  Company Number: LIT-113-14-DE

PATIENT
  Age: 29 Year
  Sex: Female

DRUGS (1)
  1. HUMAN NORMAL IMMUNOGLOBULIN (IV) (TRADENAME UNKNOWN) [Suspect]
     Active Substance: HUMAN IMMUNOGLOBULIN G
     Indication: MILLER FISHER SYNDROME
     Dosage: 400 MG/KG (1X1/TOTAL)
     Route: 042

REACTIONS (8)
  - Cerebral vasoconstriction [None]
  - Miller Fisher syndrome [None]
  - Coma [None]
  - Overlap syndrome [None]
  - Cerebral infarction [None]
  - Condition aggravated [None]
  - Treatment failure [None]
  - Posterior reversible encephalopathy syndrome [None]
